FAERS Safety Report 18493847 (Version 19)
Quarter: 2021Q2

REPORT INFORMATION
  Report Type: Report from Study
  Country: IE (occurrence: IE)
  Receive Date: 20201111
  Receipt Date: 20210619
  Transmission Date: 20210717
  Serious: Yes (Hospitalization, Other)
  Sender: FDA-Public Use
  Company Number: IE-SHIRE-IE202019400

PATIENT
  Age: 82 Year
  Sex: Female

DRUGS (45)
  1. FUROSEMIDE. [Concomitant]
     Active Substance: FUROSEMIDE
     Dosage: 40 MILLIGRAM, QD
     Route: 065
  2. VENTOLIN [Concomitant]
     Active Substance: ALBUTEROL SULFATE
     Dosage: 2.5 MILLIGRAM, QDS
     Route: 065
  3. VALTREX [Concomitant]
     Active Substance: VALACYCLOVIR HYDROCHLORIDE
     Dosage: 500 MILLIGRAM, BD
     Route: 065
  4. HUMAN IMMUNOGLOBULIN; HYALURONIDASE [Suspect]
     Active Substance: HUMAN IMMUNOGLOBULIN G\HYALURONIDASE RECOMBINANT HUMAN
     Dosage: 30 GRAM, Q2WEEKS
     Route: 058
     Dates: start: 20200707
  5. FORSTEO [Concomitant]
     Active Substance: TERIPARATIDE
     Indication: IMMUNODEFICIENCY COMMON VARIABLE
     Dosage: 20 MICROGRAM, AS PER PRESCRIPTION
     Route: 058
     Dates: start: 20210303
  6. ORAMORPH SR SUSTAINED RELEASE [Concomitant]
     Active Substance: MORPHINE SULFATE
     Dosage: 1?2ML QDS
     Route: 065
  7. BISOPROLOL [Concomitant]
     Active Substance: BISOPROLOL
     Dosage: 7.5 MILLIGRAM, QD
     Route: 065
  8. FOLIC ACID. [Concomitant]
     Active Substance: FOLIC ACID
     Dosage: 5 MILLIGRAM, QD
     Route: 050
  9. COLOMYCIN [COLISTIMETHATE SODIUM;SODIUM CHLORIDE] [Concomitant]
     Dosage: 2 NTERNATIONAL UNIT, BD
     Route: 065
  10. ATROVENT [Concomitant]
     Active Substance: IPRATROPIUM BROMIDE
     Dosage: 250 MICROGRAM
     Route: 065
  11. HYPERTONIC SALINE SOLUTION [Concomitant]
     Active Substance: SODIUM CHLORIDE
     Dosage: QDS
     Route: 065
  12. HUMAN IMMUNOGLOBULIN; HYALURONIDASE [Suspect]
     Active Substance: HUMAN IMMUNOGLOBULIN G\HYALURONIDASE RECOMBINANT HUMAN
     Dosage: 20 MILLIGRAM, Q2WEEKS
     Route: 058
     Dates: start: 20200721
  13. DIGOXIN. [Concomitant]
     Active Substance: DIGOXIN
     Dosage: 125 MICROGRAM, QD
     Route: 065
  14. FOSAVANCE [Concomitant]
     Active Substance: ALENDRONATE SODIUM\CHOLECALCIFEROL
     Dosage: 5600 INTERNATIONAL UNIT, 1/WEEK
     Route: 048
  15. CARBOCYSTEINE [Concomitant]
     Active Substance: CARBOCYSTEINE
     Dosage: 10 MILLILITER, TDS
     Route: 065
  16. NEXIUM I.V. [Concomitant]
     Active Substance: ESOMEPRAZOLE SODIUM
     Dosage: 40 MILLIGRAM, QD
     Route: 050
  17. HUMAN IMMUNOGLOBULIN; HYALURONIDASE [Suspect]
     Active Substance: HUMAN IMMUNOGLOBULIN G\HYALURONIDASE RECOMBINANT HUMAN
     Dosage: 30 MILLIGRAM, Q2WEEKS
     Route: 058
     Dates: start: 20200610
  18. HUMAN IMMUNOGLOBULIN; HYALURONIDASE [Suspect]
     Active Substance: HUMAN IMMUNOGLOBULIN G\HYALURONIDASE RECOMBINANT HUMAN
     Dosage: 20 GRAM, Q2WEEKS
     Route: 058
     Dates: start: 20200707
  19. SEPTRIN [Concomitant]
     Active Substance: SULFAMETHOXAZOLE\TRIMETHOPRIM
     Dosage: 160 MILLIGRAM, QD
     Route: 050
  20. AZOPT [Concomitant]
     Active Substance: BRINZOLAMIDE
     Dosage: UNK
     Route: 065
  21. CLOPIDOGREL [Concomitant]
     Active Substance: CLOPIDOGREL BISULFATE
     Dosage: 75 MILLIGRAM, QD
     Route: 065
  22. O2 [OXYGEN] [Concomitant]
     Active Substance: OXYGEN
     Dosage: UNK
     Route: 065
  23. XALATAN [Concomitant]
     Active Substance: LATANOPROST
     Dosage: UNK, A NIGHT
     Route: 065
  24. ELIQUIS [Concomitant]
     Active Substance: APIXABAN
     Dosage: 2.5 MILLIGRAM, BD
     Route: 050
  25. IRON [Concomitant]
     Active Substance: IRON
     Route: 050
  26. HUMAN IMMUNOGLOBULIN; HYALURONIDASE [Suspect]
     Active Substance: HUMAN IMMUNOGLOBULIN G\HYALURONIDASE RECOMBINANT HUMAN
     Dosage: 50 GRAM, Q2WEEKS
     Route: 058
     Dates: start: 20200513
  27. APIXABAN [Concomitant]
     Active Substance: APIXABAN
     Dosage: 2.5 MILLIGRAM, BD
     Route: 065
  28. DELTACORTRIL [PREDNISOLONE ACETATE] [Concomitant]
     Dosage: 5 MILLIGRAM, QD
     Route: 065
  29. SALBUTAMOL [Concomitant]
     Active Substance: ALBUTEROL
     Dosage: 2.5 MILLILITER, QDS
     Route: 050
  30. LANOXIN [Concomitant]
     Active Substance: DIGOXIN
     Dosage: 62.5 MICROGRAM, BD
     Route: 050
  31. AMOXICILLIN [AMOXICILLIN SODIUM] [Concomitant]
     Active Substance: AMOXICILLIN SODIUM
     Dosage: 250 MILLIGRAM
     Route: 050
  32. HUMAN IMMUNOGLOBULIN; HYALURONIDASE [Suspect]
     Active Substance: HUMAN IMMUNOGLOBULIN G\HYALURONIDASE RECOMBINANT HUMAN
     Indication: BRONCHIECTASIS
     Dosage: 50 GRAM, Q2WEEKS
     Route: 058
     Dates: start: 20200513
  33. HUMAN IMMUNOGLOBULIN; HYALURONIDASE [Suspect]
     Active Substance: HUMAN IMMUNOGLOBULIN G\HYALURONIDASE RECOMBINANT HUMAN
     Dosage: 50 MILLIGRAM, Q2WEEKS
     Route: 058
     Dates: start: 20200513
  34. HUMAN IMMUNOGLOBULIN; HYALURONIDASE [Suspect]
     Active Substance: HUMAN IMMUNOGLOBULIN G\HYALURONIDASE RECOMBINANT HUMAN
     Dosage: 30 GRAM, Q2WEEKS
     Route: 058
     Dates: start: 20200721
  35. ATORVASTATIN [Concomitant]
     Active Substance: ATORVASTATIN
     Dosage: 80 MILLIGRAM, QD
     Route: 065
  36. CIPRO [Concomitant]
     Active Substance: CIPROFLOXACIN HYDROCHLORIDE
     Dosage: 500 MILLIGRAM, BID
     Route: 050
  37. PREDNISOLONE. [Concomitant]
     Active Substance: PREDNISOLONE
     Dosage: 30 MILLIGRAM
     Route: 050
  38. ESOMEPRAZOLE. [Concomitant]
     Active Substance: ESOMEPRAZOLE MAGNESIUM
     Dosage: 40 MILLIGRAM, QD
     Route: 065
  39. CALCICHEW D3 FORTE [Concomitant]
     Active Substance: CALCIUM\CHOLECALCIFEROL
     Dosage: UNK, BID
     Route: 065
  40. ULTIBRO BREEZHALER [Concomitant]
     Active Substance: GLYCOPYRRONIUM\INDACATEROL
     Dosage: 85 UNK
     Route: 065
  41. HUMAN IMMUNOGLOBULIN; HYALURONIDASE [Suspect]
     Active Substance: HUMAN IMMUNOGLOBULIN G\HYALURONIDASE RECOMBINANT HUMAN
     Indication: IMMUNODEFICIENCY COMMON VARIABLE
     Dosage: 20 GRAM, Q2WEEKS
     Route: 058
     Dates: start: 20200513
  42. VALACICLOVIR [Concomitant]
     Active Substance: VALACYCLOVIR HYDROCHLORIDE
     Dosage: 500 MILLIGRAM,BD
     Route: 065
  43. PARACETAMOL [Concomitant]
     Active Substance: ACETAMINOPHEN
     Dosage: 1 GRAM
     Route: 065
  44. CITALOPRAM [Concomitant]
     Active Substance: CITALOPRAM HYDROBROMIDE
     Dosage: 20 MILLIGRAM, QD
     Route: 065
  45. AZITHROMYCIN ANHYDROUS. [Concomitant]
     Active Substance: AZITHROMYCIN ANHYDROUS
     Dosage: 250 MILLIGRAM, QOD
     Route: 050

REACTIONS (20)
  - Chest discomfort [Unknown]
  - Diarrhoea [Recovered/Resolved]
  - Dysphonia [Unknown]
  - Infusion site erythema [Recovering/Resolving]
  - Infusion site swelling [Recovering/Resolving]
  - Product use in unapproved indication [Unknown]
  - Wheezing [Unknown]
  - Fall [Unknown]
  - Device infusion issue [Recovered/Resolved]
  - Device alarm issue [Recovered/Resolved]
  - Condition aggravated [Recovered/Resolved]
  - Irritable bowel syndrome [Not Recovered/Not Resolved]
  - Wound [Unknown]
  - Productive cough [Not Recovered/Not Resolved]
  - Poor venous access [Unknown]
  - Lower respiratory tract infection [Recovering/Resolving]
  - Infusion site bruising [Recovered/Resolved]
  - Hyperhidrosis [Recovered/Resolved]
  - Dyspnoea [Recovered/Resolved]
  - Tracheal disorder [Unknown]

NARRATIVE: CASE EVENT DATE: 20200610
